FAERS Safety Report 5026356-7 (Version None)
Quarter: 2006Q2

REPORT INFORMATION
  Report Type: 
  Country: None (occurrence: None)
  Receive Date: 20060426
  Receipt Date: 20060202
  Transmission Date: 20061013
  Serious: Yes (Other)
  Sender: FDA-Public Use
  Company Number: 2006017872

PATIENT
  Age: 52 Year
  Sex: Female
  Weight: 50.8029 kg

DRUGS (1)
  1. LYRICA [Suspect]
     Indication: POST POLIO SYNDROME
     Dosage: 150 MG (50 MG, 3 IN 1 D)
     Dates: start: 20060101

REACTIONS (1)
  - OEDEMA PERIPHERAL [None]
